FAERS Safety Report 5278514-4 (Version None)
Quarter: 2007Q1

REPORT INFORMATION
  Report Type: 
  Country: None (occurrence: None)
  Receive Date: 20070322
  Receipt Date: 20070314
  Transmission Date: 20070707
  Serious: No
  Sender: FDA-Public Use
  Company Number: 236528

PATIENT
  Age: 47 Year
  Sex: Male

DRUGS (2)
  1. RAPTIVA [Suspect]
     Indication: PSORIASIS
     Dosage: 1 ML, 1/WEEK, SUBCUTANEOUS
     Route: 058
     Dates: start: 20050412
  2. WATER PILL (UNK INGREDIENTS (DIURETIC NOS) [Concomitant]

REACTIONS (2)
  - ANTIPHOSPHOLIPID SYNDROME [None]
  - DEEP VEIN THROMBOSIS [None]
